FAERS Safety Report 24378286 (Version 1)
Quarter: 2024Q3

REPORT INFORMATION
  Report Type: Spontaneous
  Country: US (occurrence: US)
  Receive Date: 20240930
  Receipt Date: 20240930
  Transmission Date: 20241016
  Serious: No
  Sender: MYLAN
  Company Number: US-MYLANLABS-2024M1085474

PATIENT
  Sex: Female
  Weight: 49.9 kg

DRUGS (3)
  1. ESTRADIOL TRANSDERMAL SYSTEM [Suspect]
     Active Substance: ESTRADIOL
     Indication: Product used for unknown indication
     Dosage: 0.1 MILLIGRAM, QD (PER DAY, TWICE-WEEKLY)
     Route: 062
     Dates: start: 2024
  2. LEVOTHYROXINE [Concomitant]
     Active Substance: LEVOTHYROXINE\LEVOTHYROXINE SODIUM
     Indication: Thyroid disorder
     Dosage: UNK
     Route: 048
  3. ESCITALOPRAM [Concomitant]
     Active Substance: ESCITALOPRAM OXALATE
     Indication: Anxiety
     Dosage: 10 MILLIGRAM, QD (ONCE DAILY)
     Route: 048

REACTIONS (4)
  - Hot flush [Recovered/Resolved]
  - Onychoclasis [Unknown]
  - Nausea [Unknown]
  - Therapeutic product effect decreased [Unknown]
